FAERS Safety Report 8652195 (Version 2)
Quarter: 2012Q4

REPORT INFORMATION
  Report Type: 
  Country: US (occurrence: US)
  Receive Date: 20120706
  Receipt Date: 20120905
  Transmission Date: 20130627
  Serious: Yes (Other)
  Sender: FDA-Public Use
  Company Number: US-SANOFI-AVENTIS-2012SA046464

PATIENT
  Age: 72 Year
  Sex: Male
  Weight: 61.4 kg

DRUGS (10)
  1. PLAVIX [Suspect]
     Indication: HEART ATTACK
     Route: 048
     Dates: start: 1999
  2. COREG [Concomitant]
  3. TRICOR [Concomitant]
  4. ACTOS /USA/ [Concomitant]
  5. ISOSORBIDE MONONITRATE [Concomitant]
  6. AZOR [Concomitant]
  7. ASPIRIN [Concomitant]
  8. FISH OIL [Concomitant]
  9. COENZYME Q10 [Concomitant]
  10. FOLIC ACID [Concomitant]

REACTIONS (2)
  - Myocardial infarction [Unknown]
  - Arteriosclerosis [Unknown]
